FAERS Safety Report 5519607-3 (Version None)
Quarter: 2007Q4

REPORT INFORMATION
  Report Type: 
  Country: None (occurrence: None)
  Receive Date: 20071116
  Receipt Date: 20071107
  Transmission Date: 20080405
  Serious: Yes (Other)
  Sender: FDA-Public Use
  Company Number: GB-WYE-H01098407

PATIENT
  Age: 77 Year
  Sex: Female

DRUGS (8)
  1. AMIODARONE [Suspect]
     Indication: ATRIAL FIBRILLATION
     Route: 048
     Dates: start: 20070810, end: 20070811
  2. ACETYLSALICYLIC ACID SRT [Concomitant]
     Dosage: 25 MG, FREQUENCY UNSPECIFIED
     Route: 048
  3. SIMVASTATIN [Concomitant]
     Dosage: 20 MG, FREQUENCY UNSPECIFIED
     Route: 048
  4. AVANDAMET [Concomitant]
     Dosage: UNKNOWN
     Dates: end: 20070808
  5. GLICLAZIDE [Concomitant]
     Dosage: 80 MG, FREQUENCY UNSPECIFIED
     Route: 048
  6. METFORMIN HCL [Concomitant]
     Dosage: 1 G, FREQUENCY UNSPECIFIED
     Route: 048
  7. AMLODIPINE [Concomitant]
     Dosage: UNKNOWN
     Dates: end: 20070808
  8. ATENOLOL [Concomitant]
     Dosage: 100 MG, FREQUENCY UNSPECIFIED
     Route: 048

REACTIONS (2)
  - HYPERHIDROSIS [None]
  - TONGUE BLISTERING [None]
